FAERS Safety Report 7997883-5 (Version None)
Quarter: 2011Q4

REPORT INFORMATION
  Report Type: 
  Country: None (occurrence: None)
  Receive Date: 20111221
  Receipt Date: 20110330
  Transmission Date: 20120403
  Serious: No
  Sender: FDA-Public Use
  Company Number: US-PFIZER INC-K201100380

PATIENT
  Age: 58 Year
  Sex: Female
  Weight: 74.83 kg

DRUGS (1)
  1. EPIPEN JR. [Suspect]
     Dosage: 0.15 MG, SINGLE
     Dates: start: 20110330, end: 20110330

REACTIONS (4)
  - EXPIRED DRUG ADMINISTERED [None]
  - ACCIDENTAL EXPOSURE [None]
  - INJECTION SITE COLDNESS [None]
  - INJECTION SITE PALLOR [None]
